FAERS Safety Report 12360018 (Version 3)
Quarter: 2016Q3

REPORT INFORMATION
  Report Type: Report from Study
  Country: US (occurrence: US)
  Receive Date: 20160512
  Receipt Date: 20160803
  Transmission Date: 20161109
  Serious: Yes (Other)
  Sender: FDA-Public Use
  Company Number: PHEH2016US011749

PATIENT
  Age: 45 Year
  Sex: Male

DRUGS (4)
  1. EXTAVIA [Suspect]
     Active Substance: INTERFERON BETA-1B
     Indication: MULTIPLE SCLEROSIS
     Dosage: 0.0625MG (0.25 ML) (WEEK 1 TO 2), QOD
     Route: 058
     Dates: start: 20160504
  2. EXTAVIA [Suspect]
     Active Substance: INTERFERON BETA-1B
     Dosage: 0.125 MG (0.5 ML) (WEEK 3 TO 4), QOD
     Route: 058
  3. EXTAVIA [Suspect]
     Active Substance: INTERFERON BETA-1B
     Dosage: 0.1875 MG (0.75 ML) (WEEK 5 TO 6), QOD
     Route: 058
  4. EXTAVIA [Suspect]
     Active Substance: INTERFERON BETA-1B
     Dosage: WEEKS 7+: 0.25MG (1 ML)
     Route: 058

REACTIONS (2)
  - Somnolence [Recovered/Resolved]
  - Liver injury [Unknown]

NARRATIVE: CASE EVENT DATE: 20160509
